FAERS Safety Report 4629867-9 (Version None)
Quarter: 2005Q2

REPORT INFORMATION
  Report Type: 
  Country: None (occurrence: None)
  Receive Date: 20050407
  Receipt Date: 20050330
  Transmission Date: 20051028
  Serious: Yes (Disabling)
  Sender: FDA-Public Use
  Company Number: 044-0981-M0200193

PATIENT
  Age: 74 Year
  Sex: Male

DRUGS (11)
  1. ATORVASTATIN CALCIUM [Suspect]
     Indication: ILL-DEFINED DISORDER
     Dosage: 10 MG (DAILY),
  2. AMLODIPINE [Suspect]
     Indication: ILL-DEFINED DISORDER
     Dosage: 10 MG (DAILY),
  3. CEDOCARD RETARD (ISOSORBIDE DINITRATE) [Suspect]
     Indication: ILL-DEFINED DISORDER
     Dosage: 60 MG (DAILY),
  4. THEOPHYLLINE [Suspect]
     Indication: CHRONIC OBSTRUCTIVE PULMONARY DISEASE
     Dosage: 500 MG (DAILY)
     Dates: start: 20011126, end: 20011211
  5. DIGOXIN [Suspect]
     Indication: ILL-DEFINED DISORDER
     Dosage: MCG (125 MCG, DAILY)
  6. LACTULOSE [Suspect]
     Indication: ILL-DEFINED DISORDER
     Dosage: 3.35 MG/5ML (BID)
  7. ACETAMINOPHEN [Suspect]
     Indication: ILL-DEFINED DISORDER
     Dosage: 1000 MG (DAILY),
  8. WARFARIN SODIUM [Suspect]
     Indication: ILL-DEFINED DISORDER
     Dosage: 1-3 (BID)
  9. ALBUTEROL SULFATE HFA [Suspect]
     Indication: ILL-DEFINED DISORDER
     Dosage: 100 MG (DAILY)
  10. BENDROFLUMETHIAZIDE (BENDROFLUMETHIAZIDE) [Suspect]
     Indication: ILL-DEFINED DISORDER
     Dosage: 2.5 MG (DAILY),
  11. TRANDOLAPRIL (TRANDOLAPRIL) [Suspect]
     Indication: ILL-DEFINED DISORDER
     Dosage: 2 MG (DAILY)

REACTIONS (1)
  - DEPRESSION SUICIDAL [None]
